FAERS Safety Report 25502956 (Version 1)
Quarter: 2025Q3

REPORT INFORMATION
  Report Type: Spontaneous
  Country: EU (occurrence: EU)
  Receive Date: 20250702
  Receipt Date: 20250702
  Transmission Date: 20251020
  Serious: Yes (Hospitalization, Other)
  Sender: AUROBINDO
  Company Number: EU-AFSSAPS-GR2025000896

PATIENT
  Age: 91 Year
  Sex: Female
  Weight: 57.1 kg

DRUGS (4)
  1. CLOPIDOGREL [Suspect]
     Active Substance: CLOPIDOGREL BISULFATE
     Indication: Acute coronary syndrome
     Dosage: 75 MILLIGRAM, ONCE A DAY
     Route: 048
     Dates: start: 20250205, end: 20250322
  2. KARDEGIC [Suspect]
     Active Substance: ASPIRIN DL-LYSINE
     Indication: Acute coronary syndrome
     Dosage: 75 MILLIGRAM, ONCE A DAY
     Route: 048
     Dates: start: 20250205, end: 20250228
  3. KARDEGIC [Suspect]
     Active Substance: ASPIRIN DL-LYSINE
     Dosage: 75 MILLIGRAM, ONCE A DAY
     Route: 048
     Dates: start: 20250322, end: 20250326
  4. ELIQUIS [Suspect]
     Active Substance: APIXABAN
     Indication: Rheumatoid arthritis
     Dosage: 5 MILLIGRAM, ONCE A DAY (2.5 MG X2/DAY)
     Route: 048
     Dates: start: 2022, end: 20250322

REACTIONS (3)
  - Melaena [Recovered/Resolved]
  - Anaemia [Recovering/Resolving]
  - Red blood cell count decreased [Recovered/Resolved]

NARRATIVE: CASE EVENT DATE: 20250228
